FAERS Safety Report 9749452 (Version 2)
Quarter: 2014Q1

REPORT INFORMATION
  Report Type: Spontaneous
  Country: CL (occurrence: CL)
  Receive Date: 20131212
  Receipt Date: 20140117
  Transmission Date: 20141002
  Serious: Yes (Hospitalization)
  Sender: FDA-Public Use
  Company Number: CL-PFIZER INC-2013352401

PATIENT
  Age: 77 Year
  Sex: Female

DRUGS (7)
  1. XALATAN [Suspect]
     Indication: GLAUCOMA
     Dosage: 1 DROP, 1X/DAY
     Route: 047
     Dates: start: 2002, end: 201311
  2. AZOPT [Concomitant]
  3. LATANOPROST (GAAP) [Concomitant]
  4. METFORMIN [Concomitant]
  5. ATENOLOL [Concomitant]
     Dosage: 0.5 TABLET
  6. LOSARTAN [Concomitant]
     Dosage: 1 DF (1 TABLET), 1X/DAY
  7. HYDROCHLOROTHIAZIDE [Concomitant]
     Dosage: 0.5 DF (0.5 TABLET), 1X/DAY

REACTIONS (9)
  - Gastritis [Recovered/Resolved]
  - Abdominal pain upper [Recovered/Resolved]
  - Night blindness [Not Recovered/Not Resolved]
  - Visual acuity reduced [Not Recovered/Not Resolved]
  - Blood cholesterol abnormal [Not Recovered/Not Resolved]
  - Lacrimation disorder [Not Recovered/Not Resolved]
  - Eyelid disorder [Not Recovered/Not Resolved]
  - Chest pain [Not Recovered/Not Resolved]
  - Off label use [Unknown]
